FAERS Safety Report 23192516 (Version 1)
Quarter: 2023Q4

REPORT INFORMATION
  Report Type: Spontaneous
  Country: US (occurrence: None)
  Receive Date: 20231116
  Receipt Date: 20231116
  Transmission Date: 20240110
  Serious: Yes (Hospitalization)
  Sender: FDA-Public Use
  Company Number: None

PATIENT
  Age: 8 Year
  Sex: Female

DRUGS (1)
  1. OXBRYTA [Suspect]
     Active Substance: VOXELOTOR
     Indication: Sickle cell disease
     Dosage: 900MG DAILY ORAL?
     Route: 048
     Dates: start: 202202

REACTIONS (2)
  - Sickle cell anaemia with crisis [None]
  - Drug interaction [None]

NARRATIVE: CASE EVENT DATE: 20231020
